FAERS Safety Report 20254595 (Version 6)
Quarter: 2022Q3

REPORT INFORMATION
  Report Type: Other
  Country: CA (occurrence: None)
  Receive Date: 20211230
  Receipt Date: 20220906
  Transmission Date: 20221027
  Serious: Yes (Other)
  Sender: FDA-Public Use
  Company Number: CA-ROCHE-2629649

PATIENT
  Sex: Female

DRUGS (1)
  1. OCREVUS [Suspect]
     Active Substance: OCRELIZUMAB
     Indication: Relapsing-remitting multiple sclerosis
     Dosage: 300 MG AT DAY 0 AND 14, THEN 600 MG EVERY 6 MONTHS
     Route: 042
     Dates: start: 20191216

REACTIONS (11)
  - Nephrolithiasis [Recovered/Resolved]
  - Vaginal haemorrhage [Not Recovered/Not Resolved]
  - Urinary tract infection [Unknown]
  - Sleep disorder [Unknown]
  - Memory impairment [Unknown]
  - Stress [Not Recovered/Not Resolved]
  - Back pain [Not Recovered/Not Resolved]
  - Pain [Not Recovered/Not Resolved]
  - Uterine polyp [Not Recovered/Not Resolved]
  - COVID-19 [Recovering/Resolving]
  - Nasal disorder [Unknown]
